FAERS Safety Report 9703563 (Version 1)
Quarter: 2013Q4

REPORT INFORMATION
  Report Type: Spontaneous
  Country: US (occurrence: US)
  Receive Date: 20131122
  Receipt Date: 20131122
  Transmission Date: 20140711
  Serious: No
  Sender: FDA-Public Use
  Company Number: US-PFIZER INC-2013332672

PATIENT
  Age: 61 Year
  Sex: Female
  Weight: 56.69 kg

DRUGS (5)
  1. XELJANZ [Suspect]
     Indication: CONNECTIVE TISSUE DISORDER
     Dosage: 5 MG, 2X/DAY
     Dates: start: 20131117
  2. XELJANZ [Suspect]
     Indication: SYSTEMIC LUPUS ERYTHEMATOSUS
  3. PREDNISONE [Concomitant]
     Indication: CONNECTIVE TISSUE DISORDER
     Dosage: UNK
  4. PREDNISONE [Concomitant]
     Indication: PROPHYLAXIS
  5. SERTRALINE [Concomitant]
     Dosage: UNK

REACTIONS (5)
  - Off label use [Unknown]
  - Headache [Not Recovered/Not Resolved]
  - Hyperhidrosis [Not Recovered/Not Resolved]
  - Dizziness [Not Recovered/Not Resolved]
  - Fatigue [Not Recovered/Not Resolved]
